FAERS Safety Report 10609858 (Version 2)
Quarter: 2014Q4

REPORT INFORMATION
  Report Type: Spontaneous
  Country: US (occurrence: US)
  Receive Date: 20141126
  Receipt Date: 20141202
  Transmission Date: 20150529
  Serious: No
  Sender: FDA-Public Use
  Company Number: US-009507513-1411USA011124

PATIENT
  Age: 52 Year
  Sex: Male

DRUGS (1)
  1. PROPECIA [Suspect]
     Active Substance: FINASTERIDE
     Indication: ALOPECIA
     Dosage: DOSE/ FREQUENCY: ONE TABLET ONCE DAILY
     Route: 048

REACTIONS (4)
  - Oral discomfort [Unknown]
  - Product taste abnormal [Unknown]
  - No adverse event [Unknown]
  - Product taste abnormal [Unknown]

NARRATIVE: CASE EVENT DATE: 2014
